FAERS Safety Report 4705864-X (Version None)
Quarter: 2005Q2

REPORT INFORMATION
  Report Type: 
  Country: None (occurrence: None)
  Receive Date: 20050629
  Receipt Date: 20050328
  Transmission Date: 20051028
  Serious: Yes (Hospitalization)
  Sender: FDA-Public Use
  Company Number: 05P-163-0295330-00

PATIENT
  Age: 61 Year
  Sex: Female
  Weight: 78.0187 kg

DRUGS (9)
  1. HUMIRA [Suspect]
     Indication: RHEUMATOID ARTHRITIS
     Dosage: 40 MG, 1 IN 1 WK, SUBCUTANEOUS
     Route: 058
     Dates: start: 20040301, end: 20041201
  2. VOLTAREN [Concomitant]
  3. PREDNISONE TAB [Concomitant]
  4. AZATHIOPRINE [Concomitant]
  5. ACETAMINOPHEN [Concomitant]
  6. LISINOPRIL [Concomitant]
  7. FLUOXETINE [Concomitant]
  8. FLUOXETINE HCL [Concomitant]
  9. NOVALIN N INSULIN [Concomitant]

REACTIONS (8)
  - ASTHENIA [None]
  - CARDIAC FAILURE CONGESTIVE [None]
  - CHILLS [None]
  - NECK PAIN [None]
  - PNEUMONIA [None]
  - PRODUCTIVE COUGH [None]
  - SHOULDER PAIN [None]
  - STAPHYLOCOCCAL INFECTION [None]
